FAERS Safety Report 8593676-9 (Version None)
Quarter: 2012Q3

REPORT INFORMATION
  Report Type: 
  Country: None (occurrence: None)
  Receive Date: 20120814
  Receipt Date: 20120806
  Transmission Date: 20120928
  Serious: Yes (Other)
  Sender: FDA-Public Use
  Company Number: DE-PFIZER INC-2012173724

PATIENT
  Age: 70 Year
  Sex: Male

DRUGS (2)
  1. ACETYLSALICYLIC ACID [Concomitant]
     Dosage: UNK
     Route: 048
  2. RAMIPRIL [Suspect]
     Indication: BLOOD PRESSURE
     Dosage: 10 MG, DAILY
     Route: 048

REACTIONS (5)
  - ALLERGY TO ARTHROPOD BITE [None]
  - HAEMORRHAGE [None]
  - OEDEMA PERIPHERAL [None]
  - ERYTHEMA [None]
  - PRURITUS [None]
